FAERS Safety Report 5105467-1 (Version None)
Quarter: 2006Q3

REPORT INFORMATION
  Report Type: 
  Country: None (occurrence: None)
  Receive Date: 20060915
  Receipt Date: 20060731
  Transmission Date: 20061208
  Serious: No
  Sender: FDA-Public Use
  Company Number: US-GLAXOSMITHKLINE-A0614170A

PATIENT
  Age: 84 Year
  Sex: Female

DRUGS (8)
  1. AVANDARYL [Suspect]
     Dosage: 1TAB PER DAY
     Route: 048
     Dates: start: 20060601
  2. ASPIRIN [Concomitant]
  3. ACIPHEX [Concomitant]
  4. FUROSEMIDE [Concomitant]
  5. LOTREL [Concomitant]
  6. ZETIA [Concomitant]
  7. PAROXETINE HCL [Concomitant]
  8. PLAVIX [Concomitant]

REACTIONS (3)
  - BLOOD GLUCOSE DECREASED [None]
  - BODY TEMPERATURE INCREASED [None]
  - DIZZINESS [None]
